FAERS Safety Report 18985259 (Version 2)
Quarter: 2025Q1

REPORT INFORMATION
  Report Type: Spontaneous
  Country: JP (occurrence: JP)
  Receive Date: 20210309
  Receipt Date: 20250331
  Transmission Date: 20250409
  Serious: Yes (Life-Threatening, Hospitalization, Other)
  Sender: AUROBINDO
  Company Number: JP-EMA-20170404-AJEVHP-143411342

PATIENT
  Age: 57 Year
  Sex: Female
  Weight: 63.2 kg

DRUGS (37)
  1. ZEVALIN [Suspect]
     Active Substance: IBRITUMOMAB TIUXETAN
     Indication: Follicle centre lymphoma, follicular grade I, II, III stage IV
     Route: 042
     Dates: start: 20100316, end: 20100316
  2. ZEVALIN [Suspect]
     Active Substance: IBRITUMOMAB TIUXETAN
     Indication: Follicle centre lymphoma, follicular grade I, II, III stage IV
     Dosage: 130 MEGABECQUEREL, ONCE A DAY
     Route: 042
     Dates: start: 20100309, end: 20100309
  3. RITUXIMAB [Concomitant]
     Active Substance: RITUXIMAB
     Indication: Follicle centre lymphoma, follicular grade I, II, III stage IV
     Dosage: 250 MILLIGRAM/SQ. METER, ONCE A DAY
     Route: 041
     Dates: start: 20100309, end: 20100309
  4. RITUXIMAB [Concomitant]
     Active Substance: RITUXIMAB
     Route: 041
     Dates: start: 20100316, end: 20100316
  5. LOXOPROFEN SODIUM [Concomitant]
     Active Substance: LOXOPROFEN SODIUM
     Indication: Premedication
     Route: 048
     Dates: start: 20100309, end: 20100309
  6. LOXOPROFEN SODIUM [Concomitant]
     Active Substance: LOXOPROFEN SODIUM
     Indication: Ileus
     Route: 048
     Dates: start: 20100309, end: 20100309
  7. LOXOPROFEN SODIUM [Concomitant]
     Active Substance: LOXOPROFEN SODIUM
     Route: 048
     Dates: start: 20100316, end: 20100316
  8. LOXOPROFEN SODIUM [Concomitant]
     Active Substance: LOXOPROFEN SODIUM
     Route: 048
     Dates: start: 20100316, end: 20100316
  9. LOXOPROFEN SODIUM [Concomitant]
     Active Substance: LOXOPROFEN SODIUM
     Route: 048
     Dates: start: 20100401, end: 20100519
  10. LOXOPROFEN SODIUM [Concomitant]
     Active Substance: LOXOPROFEN SODIUM
     Route: 048
     Dates: start: 20100401, end: 20100519
  11. LOXOPROFEN SODIUM [Concomitant]
     Active Substance: LOXOPROFEN SODIUM
     Route: 048
     Dates: start: 20100510, end: 20100519
  12. GARENOXACIN [Concomitant]
     Active Substance: GARENOXACIN
     Indication: Infection prophylaxis
     Route: 048
     Dates: start: 20100420, end: 20100423
  13. POLARAMINE [Concomitant]
     Active Substance: DEXCHLORPHENIRAMINE MALEATE
     Indication: Premedication
     Route: 048
     Dates: start: 20100309, end: 20100309
  14. POLARAMINE [Concomitant]
     Active Substance: DEXCHLORPHENIRAMINE MALEATE
     Route: 048
     Dates: start: 20100316, end: 20100316
  15. SODIUM FERROUS CITRATE [Concomitant]
     Active Substance: SODIUM FERROUS CITRATE
     Indication: Anaemia prophylaxis
     Route: 048
     Dates: start: 20100308, end: 20100812
  16. SODIUM FERROUS CITRATE [Concomitant]
     Active Substance: SODIUM FERROUS CITRATE
     Route: 048
     Dates: start: 20100308, end: 20100407
  17. GASLON [Concomitant]
     Active Substance: IRSOGLADINE MALEATE
     Indication: Prophylaxis
     Route: 048
     Dates: start: 20100308, end: 20100407
  18. MAGNESIUM OXIDE [Concomitant]
     Active Substance: MAGNESIUM OXIDE
     Indication: Constipation prophylaxis
     Route: 048
     Dates: start: 20100308, end: 20100812
  19. MAGNESIUM OXIDE [Concomitant]
     Active Substance: MAGNESIUM OXIDE
     Route: 048
     Dates: start: 20100308, end: 20100407
  20. MAGNESIUM OXIDE [Concomitant]
     Active Substance: MAGNESIUM OXIDE
     Route: 048
     Dates: start: 20100524, end: 20100608
  21. GARENOXACIN MESYLATE [Concomitant]
     Active Substance: GARENOXACIN MESYLATE
     Indication: Infection prophylaxis
     Route: 048
     Dates: start: 20100420, end: 20100423
  22. ZOLPIDEM TARTRATE [Concomitant]
     Active Substance: ZOLPIDEM TARTRATE
     Indication: Insomnia
     Route: 048
     Dates: start: 20100608
  23. GASTER [Concomitant]
     Active Substance: FAMOTIDINE
     Indication: Prophylaxis
     Route: 042
     Dates: start: 20100602, end: 20100605
  24. LACTOBACILLUS ACIDOPHILUS\STREPTOCOCCUS FAECAIS [Concomitant]
     Active Substance: LACTOBACILLUS ACIDOPHILUS\STREPTOCOCCUS FAECAIS
     Indication: Enterocolitis
     Route: 048
     Dates: start: 20100412, end: 20100608
  25. PANCRELIPASE [Concomitant]
     Active Substance: PANCRELIPASE
     Indication: Enterocolitis
     Route: 048
     Dates: start: 20100412, end: 20100618
  26. MOSAPRIDE CITRATE [Concomitant]
     Active Substance: MOSAPRIDE CITRATE
     Indication: Enterocolitis
     Route: 048
     Dates: start: 20100415, end: 20100608
  27. METOCLOPRAMIDE [Concomitant]
     Active Substance: METOCLOPRAMIDE
     Indication: Ileus
     Route: 048
     Dates: start: 20100406
  28. METOCLOPRAMIDE [Concomitant]
     Active Substance: METOCLOPRAMIDE
     Route: 048
     Dates: start: 20100512, end: 20100518
  29. METOCLOPRAMIDE [Concomitant]
     Active Substance: METOCLOPRAMIDE
     Route: 042
     Dates: start: 20100528, end: 20100528
  30. METHOTREXATE [Concomitant]
     Active Substance: METHOTREXATE
     Indication: Product used for unknown indication
     Route: 042
     Dates: start: 20100531
  31. ASPIRIN [Concomitant]
     Active Substance: ASPIRIN
     Indication: Product used for unknown indication
     Route: 042
     Dates: start: 20100529
  32. VITAMIN C [Concomitant]
     Active Substance: ASCORBIC ACID
     Indication: Ulcer
     Route: 042
     Dates: start: 20100527, end: 20100527
  33. VITAMIN C [Concomitant]
     Active Substance: ASCORBIC ACID
     Route: 042
     Dates: start: 20100501
  34. CYCLOPHOSPHAMIDE [Concomitant]
     Active Substance: CYCLOPHOSPHAMIDE
     Indication: Follicle centre lymphoma, follicular grade I, II, III stage IV
     Route: 065
  35. DOXORUBICIN [Concomitant]
     Active Substance: DOXORUBICIN
     Indication: Follicle centre lymphoma, follicular grade I, II, III stage IV
     Route: 065
  36. VINCRISTINE [Concomitant]
     Active Substance: VINCRISTINE
     Indication: Follicle centre lymphoma, follicular grade I, II, III stage IV
     Route: 065
  37. PREDNISOLONE [Concomitant]
     Active Substance: PREDNISOLONE
     Indication: Follicle centre lymphoma, follicular grade I, II, III stage IV
     Route: 065

REACTIONS (10)
  - Ileus [Recovered/Resolved]
  - Enterocolitis [Recovering/Resolving]
  - White blood cell count decreased [Recovered/Resolved]
  - Neutrophil count decreased [Recovered/Resolved]
  - Platelet count decreased [Recovered/Resolved]
  - Haemoglobin decreased [Recovered/Resolved]
  - Pyrexia [Recovered/Resolved]
  - C-reactive protein increased [Unknown]
  - Blood albumin decreased [Recovered/Resolved]
  - Constipation [Recovered/Resolved]

NARRATIVE: CASE EVENT DATE: 20100330
